FAERS Safety Report 10557029 (Version 1)
Quarter: 2014Q4

REPORT INFORMATION
  Report Type: Spontaneous
  Country: US (occurrence: None)
  Receive Date: 20141030
  Receipt Date: 20141030
  Transmission Date: 20150529
  Serious: Yes (Hospitalization)
  Sender: FDA-Public Use
  Company Number: None

PATIENT
  Age: 60 Year
  Sex: Male
  Weight: 86.8 kg

DRUGS (1)
  1. ETODOLAC. [Suspect]
     Active Substance: ETODOLAC
     Indication: OSTEOARTHRITIS
     Route: 048
     Dates: start: 20141007, end: 20141017

REACTIONS (3)
  - Arthralgia [None]
  - Vasculitis [None]
  - Rash [None]

NARRATIVE: CASE EVENT DATE: 20141015
